FAERS Safety Report 24767888 (Version 1)
Quarter: 2024Q4

REPORT INFORMATION
  Report Type: Spontaneous
  Country: RO (occurrence: RO)
  Receive Date: 20241223
  Receipt Date: 20241223
  Transmission Date: 20250115
  Serious: Yes (Death, Other)
  Sender: SHIONOGI
  Company Number: RO-shionogi-202400004181

PATIENT
  Age: 61 Year

DRUGS (2)
  1. CEFIDEROCOL [Suspect]
     Active Substance: CEFIDEROCOL
     Indication: Septic shock
  2. COLISTIN [Suspect]
     Active Substance: COLISTIN
     Indication: Septic shock

REACTIONS (1)
  - Death [Fatal]
